FAERS Safety Report 15628010 (Version 1)
Quarter: 2018Q4

REPORT INFORMATION
  Report Type: Spontaneous
  Country: CA (occurrence: CA)
  Receive Date: 20181116
  Receipt Date: 20181116
  Transmission Date: 20190205
  Serious: Yes (Death)
  Sender: FDA-Public Use
  Company Number: CA-PFIZER INC-2018463799

PATIENT
  Age: 37 Year
  Sex: Male

DRUGS (19)
  1. PIPERACILLIN AND TAZOBACTAM [Suspect]
     Active Substance: PIPERACILLIN SODIUM\TAZOBACTAM SODIUM
     Indication: ESCHERICHIA BACTERAEMIA
  2. PREDNISONE. [Concomitant]
     Active Substance: PREDNISONE
     Indication: APLASTIC ANAEMIA
     Dosage: 1 MG/KG, DAILY
  3. PREDNISONE. [Concomitant]
     Active Substance: PREDNISONE
     Dosage: 30 MG, DAILY
  4. MEROPENEM. [Suspect]
     Active Substance: MEROPENEM
     Indication: AEROMONAS INFECTION
     Dosage: 1000 MG, 3X/DAY (EVERY 8 HOURS)
     Route: 042
  5. DAPSONE. [Concomitant]
     Active Substance: DAPSONE
     Indication: ANTIFUNGAL PROPHYLAXIS
     Dosage: 50 MG, DAILY
     Route: 048
  6. VANCOMYCIN HCL [Suspect]
     Active Substance: VANCOMYCIN HYDROCHLORIDE
     Indication: EVIDENCE BASED TREATMENT
     Dosage: 1.5 G, 2X/DAY (EVERY 12 HOURS)
     Route: 042
  7. ATGAM [Concomitant]
     Active Substance: EQUINE THYMOCYTE IMMUNE GLOBULIN
     Indication: APLASTIC ANAEMIA
     Dosage: 40 MG/KG, DAILY FOR 4 CONSECUTIVE DAYS
  8. VALTREX [Concomitant]
     Active Substance: VALACYCLOVIR HYDROCHLORIDE
     Dosage: 500 MG, DAILY
     Route: 048
  9. METRONIDAZOLE. [Suspect]
     Active Substance: METRONIDAZOLE
     Indication: EVIDENCE BASED TREATMENT
     Dosage: 500 MG, 2X/DAY
     Route: 048
  10. CIPROFLOXACIN HCL [Suspect]
     Active Substance: CIPROFLOXACIN HYDROCHLORIDE
     Indication: AEROMONAS INFECTION
     Dosage: 500 MG, 2X/DAY
     Route: 048
  11. CYCLOSPORINE. [Concomitant]
     Active Substance: CYCLOSPORINE
     Indication: APLASTIC ANAEMIA
     Dosage: 225 MG, 2X/DAY
     Route: 048
  12. CYCLOSPORINE. [Concomitant]
     Active Substance: CYCLOSPORINE
     Dosage: 5 MG/KG, DAILY
  13. VANCOMYCIN HCL [Suspect]
     Active Substance: VANCOMYCIN HYDROCHLORIDE
     Indication: AEROMONAS INFECTION
  14. METRONIDAZOLE. [Suspect]
     Active Substance: METRONIDAZOLE
     Indication: AEROMONAS INFECTION
  15. ATGAM [Concomitant]
     Active Substance: EQUINE THYMOCYTE IMMUNE GLOBULIN
     Dosage: UNK (FIVE DOSES)
  16. PANTOLOC [PANTOPRAZOLE] [Concomitant]
     Dosage: 40 MG, DAILY
     Route: 048
  17. CLINDAMYCIN PHOSPHATE. [Suspect]
     Active Substance: CLINDAMYCIN PHOSPHATE
     Indication: AEROMONAS INFECTION
     Dosage: 600 MG, 3X/DAY(EVERY 8 HOURS)
     Route: 042
  18. PIPERACILLIN AND TAZOBACTAM [Suspect]
     Active Substance: PIPERACILLIN SODIUM\TAZOBACTAM SODIUM
     Indication: EVIDENCE BASED TREATMENT
     Dosage: 3.375 G, 4X/DAY (EVERY 6 HOURS)
     Route: 042
  19. IMMUNOGLOBULIN HUMAN [Concomitant]
     Active Substance: HUMAN IMMUNOGLOBULIN G
     Indication: AEROMONAS INFECTION
     Dosage: 2 G, UNK (HIGH DOSE 2 G/KG)
     Route: 042

REACTIONS (1)
  - Drug ineffective [Fatal]
